FAERS Safety Report 6307334-4 (Version None)
Quarter: 2009Q3

REPORT INFORMATION
  Report Type: 
  Country: None (occurrence: None)
  Receive Date: 20090813
  Receipt Date: 20090730
  Transmission Date: 20100115
  Serious: Yes (Hospitalization, Other)
  Sender: FDA-Public Use
  Company Number: US-JNJFOC-20090710007

PATIENT
  Sex: Male
  Weight: 102.51 kg

DRUGS (15)
  1. REMICADE [Suspect]
     Indication: RHEUMATOID ARTHRITIS
     Dosage: ONCE EVERY 6-8 WEEKS
     Route: 042
  2. METHOTREXATE [Concomitant]
     Route: 050
  3. LITHIUM [Concomitant]
     Route: 048
  4. PREDNISONE [Concomitant]
     Route: 048
  5. LORTAB [Concomitant]
  6. OXYCONTIN [Concomitant]
     Indication: PAIN
     Route: 048
  7. PROMETHAZINE [Concomitant]
     Route: 048
  8. FOLIC ACID [Concomitant]
     Route: 048
  9. IBUPROFEN [Concomitant]
     Route: 048
  10. CARISOPRODOL [Concomitant]
     Route: 048
  11. TRAZODONE HCL [Concomitant]
     Indication: SLEEP DISORDER THERAPY
     Route: 048
  12. VIAGRA [Concomitant]
     Route: 048
  13. ACETAMINOPHEN AND HYDROCODONE BITARTRATE [Concomitant]
     Indication: PAIN
     Route: 048
  14. DIAZEPAM [Concomitant]
     Route: 048
  15. SULFAMETHOXAZOLE [Concomitant]
     Route: 048

REACTIONS (1)
  - HISTOPLASMOSIS DISSEMINATED [None]
